FAERS Safety Report 9746819 (Version 1)
Quarter: 2013Q4

REPORT INFORMATION
  Report Type: Spontaneous
  Country: GB (occurrence: GB)
  Receive Date: 20131211
  Receipt Date: 20131211
  Transmission Date: 20140711
  Serious: Yes (Death, Hospitalization)
  Sender: FDA-Public Use
  Company Number: GB-MALLINCKRODT-T201305056

PATIENT
  Age: 81 Year
  Sex: Male

DRUGS (1)
  1. OPTIRAY 350 [Suspect]
     Indication: ANGIOGRAM PULMONARY
     Dosage: 75 ML, SINGLE, SYRINGE, 5 MLS/SEC, OPTIVANTAGE DH NJECTOR
     Route: 042
     Dates: start: 20130426, end: 20130426

REACTIONS (1)
  - Anaphylactic reaction [Fatal]
